FAERS Safety Report 9807037 (Version 3)
Quarter: 2014Q2

REPORT INFORMATION
  Report Type: Spontaneous
  Country: JP (occurrence: JP)
  Receive Date: 20140110
  Receipt Date: 20140415
  Transmission Date: 20141212
  Serious: Yes (Hospitalization)
  Sender: FDA-Public Use
  Company Number: JP-ROCHE-1331790

PATIENT
  Age: 67 Year
  Sex: 0

DRUGS (7)
  1. LUCENTIS [Suspect]
     Indication: RETINAL VEIN OCCLUSION
     Route: 050
     Dates: start: 20131205
  2. METHOTREXATE [Concomitant]
  3. VOLTAREN [Concomitant]
  4. PROGRAF [Concomitant]
  5. METHYCOBAL [Concomitant]
  6. NORVASC [Concomitant]
  7. PARIET [Concomitant]

REACTIONS (1)
  - Cerebral haemorrhage [Unknown]
